FAERS Safety Report 14103527 (Version 1)
Quarter: 2017Q4

REPORT INFORMATION
  Report Type: Spontaneous
  Country: DE (occurrence: DE)
  Receive Date: 20171018
  Receipt Date: 20171018
  Transmission Date: 20180321
  Serious: Yes (Other)
  Sender: FDA-Public Use
  Company Number: DE-INCYTE CORPORATION-2017IN008879

PATIENT

DRUGS (2)
  1. JAKAVI [Suspect]
     Active Substance: RUXOLITINIB
     Dosage: 2 DF, QD
     Route: 065
  2. JAKAVI [Suspect]
     Active Substance: RUXOLITINIB
     Indication: MYELOFIBROSIS
     Dosage: UNK
     Route: 065
     Dates: start: 2013

REACTIONS (7)
  - Oesophageal varices haemorrhage [Unknown]
  - Spleen congestion [Unknown]
  - Cerebrovascular accident [Unknown]
  - Platelet count decreased [Unknown]
  - Body temperature increased [Unknown]
  - Intracranial aneurysm [Unknown]
  - Libido disorder [Unknown]

NARRATIVE: CASE EVENT DATE: 2013
